FAERS Safety Report 10762953 (Version 2)
Quarter: 2015Q1

REPORT INFORMATION
  Report Type: Report from Study
  Country: IE (occurrence: IE)
  Receive Date: 20150204
  Receipt Date: 20150217
  Transmission Date: 20150721
  Serious: Yes (Other)
  Sender: FDA-Public Use
  Company Number: IE-JNJFOC-20150118646

PATIENT
  Sex: Male

DRUGS (1)
  1. IBRUTINIB [Suspect]
     Active Substance: IBRUTINIB
     Indication: MANTLE CELL LYMPHOMA
     Dosage: TREATED APPROXIMATELY 2 MONTHS
     Route: 048

REACTIONS (4)
  - Eye haemorrhage [Unknown]
  - Haematuria [Unknown]
  - Blindness unilateral [Not Recovered/Not Resolved]
  - Bradycardia [Unknown]
